FAERS Safety Report 4722554-8 (Version None)
Quarter: 2005Q3

REPORT INFORMATION
  Report Type: 
  Country: None (occurrence: None)
  Receive Date: 20050722
  Receipt Date: 20050715
  Transmission Date: 20060218
  Serious: Yes (Death, Other)
  Sender: FDA-Public Use
  Company Number: PHBS2005AT10279

PATIENT
  Age: 53 Year
  Sex: Male

DRUGS (3)
  1. AZATHIOPRINE [Suspect]
     Indication: RENAL TRANSPLANT
  2. STEROIDS NOS [Suspect]
     Indication: RENAL TRANSPLANT
  3. CYCLOSPORINE [Suspect]
     Indication: RENAL TRANSPLANT
     Route: 065
     Dates: start: 19920326

REACTIONS (3)
  - HERPES SIMPLEX [None]
  - KAPOSI'S SARCOMA [None]
  - MYOCARDIAL INFARCTION [None]
